FAERS Safety Report 10217409 (Version 1)
Quarter: 2014Q2

REPORT INFORMATION
  Report Type: Spontaneous
  Country: NO (occurrence: NO)
  Receive Date: 20140604
  Receipt Date: 20140604
  Transmission Date: 20141212
  Serious: Yes (Other)
  Sender: FDA-Public Use
  Company Number: NO-INCYTE CORPORATION-2014IN001516

PATIENT
  Sex: 0

DRUGS (2)
  1. JAKAVI [Suspect]
     Dosage: UNK UNK, UNK
     Route: 065
  2. JAKAVI [Suspect]
     Dosage: UNK UNK, UNK
     Route: 065

REACTIONS (1)
  - Polyneuropathy [Not Recovered/Not Resolved]
